FAERS Safety Report 25172910 (Version 1)
Quarter: 2025Q2

REPORT INFORMATION
  Report Type: Spontaneous
  Country: JP (occurrence: JP)
  Receive Date: 20250408
  Receipt Date: 20250408
  Transmission Date: 20250717
  Serious: Yes (Other)
  Sender: MERCK SHARP AND DOHME
  Company Number: JP-009507513-2270944

PATIENT
  Age: 52 Year
  Sex: Male

DRUGS (1)
  1. PEMBROLIZUMAB [Suspect]
     Active Substance: PEMBROLIZUMAB
     Indication: Lung adenocarcinoma stage IV
     Route: 065

REACTIONS (4)
  - Cerebral infarction [Recovering/Resolving]
  - Brain stem infarction [Recovering/Resolving]
  - Cerebral artery stenosis [Recovering/Resolving]
  - Thalamic infarction [Recovering/Resolving]
